FAERS Safety Report 17618622 (Version 1)
Quarter: 2020Q2

REPORT INFORMATION
  Report Type: Spontaneous
  Country: US (occurrence: US)
  Receive Date: 20200402
  Receipt Date: 20200402
  Transmission Date: 20200713
  Serious: Yes (Other)
  Sender: FDA-Public Use
  Company Number: US-BAXTER-2020BAX006953

PATIENT
  Age: 21 Year
  Sex: Female
  Weight: 85.35 kg

DRUGS (1)
  1. BUPIVACAINE HYDROCHLORIDE IN 8.25% DEXTROSE INJECTION USP [Suspect]
     Active Substance: BUPIVACAINE HYDROCHLORIDE
     Indication: SPINAL ANAESTHESIA
     Dosage: HYPERBARIC?SPINAL ANESTHESIA
     Route: 050

REACTIONS (3)
  - Spinal cord injury [Unknown]
  - Anaesthetic complication [Unknown]
  - Exposure during pregnancy [Unknown]
